FAERS Safety Report 24767318 (Version 3)
Quarter: 2025Q2

REPORT INFORMATION
  Report Type: Report from Study
  Country: JP (occurrence: JP)
  Receive Date: 20241223
  Receipt Date: 20250508
  Transmission Date: 20250716
  Serious: Yes (Hospitalization)
  Sender: EISAI
  Company Number: JP-Eisai-202412463_LEN-EC_P_1

PATIENT
  Age: 63 Year
  Sex: Female
  Weight: 76 kg

DRUGS (13)
  1. LENVIMA [Suspect]
     Active Substance: LENVATINIB
     Indication: Endometrial cancer recurrent
     Dates: start: 20240528, end: 20240609
  2. LENVIMA [Suspect]
     Active Substance: LENVATINIB
     Dates: start: 20240625, end: 20240701
  3. LENVIMA [Suspect]
     Active Substance: LENVATINIB
     Dates: start: 20240702, end: 20240722
  4. LENVIMA [Suspect]
     Active Substance: LENVATINIB
     Dates: start: 20240723
  5. KEYTRUDA [Concomitant]
     Active Substance: PEMBROLIZUMAB
     Indication: Endometrial cancer recurrent
     Route: 042
     Dates: start: 20240528, end: 20240528
  6. KEYTRUDA [Concomitant]
     Active Substance: PEMBROLIZUMAB
     Route: 042
     Dates: start: 20240624, end: 20240624
  7. KEYTRUDA [Concomitant]
     Active Substance: PEMBROLIZUMAB
     Route: 041
     Dates: start: 20240722, end: 20240722
  8. KEYTRUDA [Concomitant]
     Active Substance: PEMBROLIZUMAB
     Route: 042
     Dates: start: 20240819, end: 20240819
  9. KEYTRUDA [Concomitant]
     Active Substance: PEMBROLIZUMAB
     Route: 042
     Dates: start: 20240909, end: 20240909
  10. KEYTRUDA [Concomitant]
     Active Substance: PEMBROLIZUMAB
     Route: 042
     Dates: start: 20240930, end: 20240930
  11. KEYTRUDA [Concomitant]
     Active Substance: PEMBROLIZUMAB
     Route: 042
     Dates: start: 20241021, end: 20241021
  12. KEYTRUDA [Concomitant]
     Active Substance: PEMBROLIZUMAB
     Dates: start: 20241111, end: 20241111
  13. HEPARINOID [Concomitant]
     Indication: Palmar-plantar erythrodysaesthesia syndrome

REACTIONS (1)
  - Platelet count decreased [Recovering/Resolving]

NARRATIVE: CASE EVENT DATE: 20240610
